FAERS Safety Report 17040797 (Version 1)
Quarter: 2019Q4

REPORT INFORMATION
  Report Type: Report from Study
  Country: US (occurrence: US)
  Receive Date: 20191117
  Receipt Date: 20191117
  Transmission Date: 20200122
  Serious: Yes (Hospitalization, Other)
  Sender: FDA-Public Use
  Company Number: US-BRISTOL-MYERS SQUIBB COMPANY-BMS-2019-040132

PATIENT
  Age: 35 Year
  Sex: Female
  Weight: 42.3 kg

DRUGS (2)
  1. IPILIMUMAB [Suspect]
     Active Substance: IPILIMUMAB
     Indication: NEOPLASM
     Dosage: 42.5 MILLIGRAM
     Route: 065
     Dates: end: 20190322
  2. NIVOLUMAB [Suspect]
     Active Substance: NIVOLUMAB
     Indication: NEOPLASM
     Dosage: 240 MILLIGRAM
     Route: 065
     Dates: end: 20190322

REACTIONS (1)
  - Gastritis haemorrhagic [Unknown]

NARRATIVE: CASE EVENT DATE: 201904
